FAERS Safety Report 12357573 (Version 1)
Quarter: 2016Q2

REPORT INFORMATION
  Report Type: Report from Study
  Country: US (occurrence: US)
  Receive Date: 20160512
  Receipt Date: 20160512
  Transmission Date: 20160815
  Serious: No
  Sender: FDA-Public Use
  Company Number: US-AMGEN-USASL2016058404

PATIENT
  Age: 1 Year
  Sex: Female

DRUGS (4)
  1. ENBREL [Suspect]
     Active Substance: ETANERCEPT
     Indication: PYREXIA
  2. ENBREL [Suspect]
     Active Substance: ETANERCEPT
     Indication: SIDEROBLASTIC ANAEMIA
     Dosage: 25 MG, QWK
     Route: 065
     Dates: start: 20150526
  3. ENBREL [Suspect]
     Active Substance: ETANERCEPT
     Indication: HYPOGAMMAGLOBULINAEMIA
  4. ENBREL [Suspect]
     Active Substance: ETANERCEPT
     Indication: FAILURE TO THRIVE

REACTIONS (1)
  - Off label use [Unknown]

NARRATIVE: CASE EVENT DATE: 2015
